FAERS Safety Report 14803920 (Version 1)
Quarter: 2018Q2

REPORT INFORMATION
  Report Type: Spontaneous
  Country: HR (occurrence: HR)
  Receive Date: 20180425
  Receipt Date: 20180425
  Transmission Date: 20180711
  Serious: Yes (Hospitalization)
  Sender: FDA-Public Use
  Company Number: HR-ACCORD-066007

PATIENT
  Age: 66 Year
  Sex: Male

DRUGS (9)
  1. CLOPIDOGREL [Suspect]
     Active Substance: CLOPIDOGREL BISULFATE
     Indication: PRODUCT USED FOR UNKNOWN INDICATION
  2. BISOPROLOL [Concomitant]
     Active Substance: BISOPROLOL
  3. XARELTO [Suspect]
     Active Substance: RIVAROXABAN
     Indication: ATRIAL FIBRILLATION
     Dosage: STRENGTH: 15 MG
  4. ATORVASTATIN [Concomitant]
     Active Substance: ATORVASTATIN
  5. INDAPAMIDE/PERINDOPRIL [Concomitant]
  6. INSULIN [Concomitant]
     Active Substance: INSULIN NOS
  7. ASPIRIN PROTECT [Suspect]
     Active Substance: ASPIRIN
     Indication: PRODUCT USED FOR UNKNOWN INDICATION
     Dosage: STRENGTH: 100 MG
  8. AMLODIPINE [Concomitant]
     Active Substance: AMLODIPINE BESYLATE
  9. PANTOPRAZOLE [Concomitant]
     Active Substance: PANTOPRAZOLE
     Dosage: UNK

REACTIONS (5)
  - Foot fracture [Unknown]
  - Haematoma [Unknown]
  - Anaemia [Unknown]
  - Joint dislocation [Unknown]
  - Oedema peripheral [Unknown]
